FAERS Safety Report 5177159-4 (Version None)
Quarter: 2006Q4

REPORT INFORMATION
  Report Type: 
  Country: None (occurrence: None)
  Receive Date: 20061218
  Receipt Date: 20061208
  Transmission Date: 20070319
  Serious: Yes (Other)
  Sender: FDA-Public Use
  Company Number: PHNU2006DE04092

PATIENT
  Age: 65 Year
  Sex: Female
  Weight: 52 kg

DRUGS (3)
  1. BISPHOSPHONATES [Concomitant]
     Indication: PLASMACYTOMA
     Dates: start: 20030301, end: 20030401
  2. PREDNISONE TAB [Concomitant]
     Indication: PLASMACYTOMA
     Dosage: 90 MG, UNK
     Route: 065
     Dates: start: 20030301, end: 20030401
  3. ZOMETA [Suspect]
     Indication: MULTIPLE MYELOMA
     Dosage: 4 MG, QMO
     Route: 042
     Dates: start: 20030301, end: 20050301

REACTIONS (4)
  - BIOPSY SITE UNSPECIFIED ABNORMAL [None]
  - BONE DISORDER [None]
  - DENTAL TREATMENT [None]
  - OSTEOTOMY [None]
